FAERS Safety Report 10078460 (Version 2)
Quarter: 2014Q2

REPORT INFORMATION
  Report Type: Spontaneous
  Country: US (occurrence: US)
  Receive Date: 20140415
  Receipt Date: 20140505
  Transmission Date: 20141212
  Serious: No
  Sender: FDA-Public Use
  Company Number: US-ROXANE LABORATORIES, INC.-2014-RO-00591RO

PATIENT
  Age: 63 Year
  Sex: Female
  Weight: 87 kg

DRUGS (6)
  1. PREDNISONE [Suspect]
     Indication: IDIOPATHIC PULMONARY FIBROSIS
     Dosage: 10 MG
     Route: 048
     Dates: start: 20140109, end: 20140409
  2. COLCRYS [Concomitant]
     Indication: IDIOPATHIC PULMONARY FIBROSIS
     Dosage: 0.6 MG
     Route: 065
     Dates: start: 20140115
  3. CITALOPRAM [Concomitant]
     Indication: IDIOPATHIC PULMONARY FIBROSIS
     Dosage: 20 MG
     Route: 048
     Dates: start: 20140115
  4. CITALOPRAM [Concomitant]
     Indication: DEPRESSION
  5. N-ACETYLCYSTEINE [Concomitant]
     Indication: IDIOPATHIC PULMONARY FIBROSIS
     Dosage: 600 MG
     Route: 065
     Dates: start: 20140206
  6. XANAX [Concomitant]
     Indication: ANXIETY
     Dosage: 1 MG
     Route: 048
     Dates: start: 20140228

REACTIONS (5)
  - Drug ineffective [Unknown]
  - Weight increased [Unknown]
  - Alopecia [Unknown]
  - Insomnia [Unknown]
  - Product quality issue [Unknown]
